FAERS Safety Report 13565105 (Version 1)
Quarter: 2017Q2

REPORT INFORMATION
  Report Type: Report from Study
  Country: US (occurrence: US)
  Receive Date: 20170519
  Receipt Date: 20170519
  Transmission Date: 20170830
  Serious: Yes (Hospitalization, Other)
  Sender: FDA-Public Use
  Company Number: US-SA-2017SA087985

PATIENT
  Age: 40 Year
  Sex: Female
  Weight: 83.46 kg

DRUGS (15)
  1. KEFLEX [Concomitant]
     Active Substance: CEPHALEXIN
     Indication: DRUG THERAPY
     Route: 048
     Dates: start: 20140430
  2. SYSTANE ULTRA [Concomitant]
     Active Substance: POLYETHYLENE GLYCOL 400\PROPYLENE GLYCOL
     Indication: DRUG THERAPY
     Dosage: ROUTE: INTRAOCULAR
     Dates: start: 201409
  3. NORCO [Concomitant]
     Active Substance: ACETAMINOPHEN\HYDROCODONE BITARTRATE
     Indication: DRUG THERAPY
     Route: 048
     Dates: start: 20130521
  4. CALCIUM [Concomitant]
     Active Substance: CALCIUM
     Indication: PROPHYLAXIS
     Route: 048
     Dates: start: 2002
  5. BACLOFEN. [Concomitant]
     Active Substance: BACLOFEN
     Indication: DRUG THERAPY
     Route: 048
     Dates: start: 20150527
  6. ZOFRAN [Concomitant]
     Active Substance: ONDANSETRON HYDROCHLORIDE
     Indication: DRUG THERAPY
     Route: 048
     Dates: start: 20140201
  7. LORATADINE. [Concomitant]
     Active Substance: LORATADINE
     Indication: DRUG THERAPY
     Route: 048
     Dates: start: 20150527
  8. ALEMTUZUMAB [Suspect]
     Active Substance: ALEMTUZUMAB
     Indication: MULTIPLE SCLEROSIS
     Dosage: INTENDED DOSE: 72 MG
     Route: 065
     Dates: start: 20100331, end: 20100402
  9. NAMENDA [Concomitant]
     Active Substance: MEMANTINE HYDROCHLORIDE
     Indication: DRUG THERAPY
     Route: 048
     Dates: start: 20150628, end: 20161017
  10. PROZAC [Concomitant]
     Active Substance: FLUOXETINE HYDROCHLORIDE
     Indication: DRUG THERAPY
     Route: 048
     Dates: start: 20150930
  11. ZANTAC [Concomitant]
     Active Substance: RANITIDINE HYDROCHLORIDE
     Indication: DRUG THERAPY
     Route: 048
     Dates: start: 20131121
  12. SENNA [Concomitant]
     Active Substance: SENNA LEAF\SENNOSIDES\SENNOSIDES A AND B
     Indication: PROPHYLAXIS
     Route: 048
     Dates: start: 20150527
  13. ALEMTUZUMAB [Suspect]
     Active Substance: ALEMTUZUMAB
     Indication: MULTIPLE SCLEROSIS
     Dosage: INTENDED DOSE: 120 MG
     Route: 065
     Dates: start: 20090327, end: 20090403
  14. VERAPAMIL [Concomitant]
     Active Substance: VERAPAMIL HYDROCHLORIDE
     Indication: DRUG THERAPY
     Route: 048
     Dates: start: 20150831, end: 20161017
  15. ACETAMINOPHEN. [Concomitant]
     Active Substance: ACETAMINOPHEN
     Indication: PROPHYLAXIS
     Route: 048
     Dates: start: 20150527

REACTIONS (1)
  - Pregnancy [Not Recovered/Not Resolved]

NARRATIVE: CASE EVENT DATE: 20161115
